FAERS Safety Report 21376077 (Version 1)
Quarter: 2022Q3

REPORT INFORMATION
  Report Type: Spontaneous
  Country: US (occurrence: None)
  Receive Date: 20220923
  Receipt Date: 20220923
  Transmission Date: 20221026
  Serious: Yes (Disabling)
  Sender: FDA-Public Use
  Company Number: None

PATIENT
  Age: 59 Year
  Sex: Male
  Weight: 74.25 kg

DRUGS (1)
  1. OCREVUS [Suspect]
     Active Substance: OCRELIZUMAB
     Indication: Primary progressive multiple sclerosis
     Dates: start: 20220411

REACTIONS (9)
  - Headache [None]
  - Abdominal discomfort [None]
  - Diarrhoea [None]
  - Alopecia [None]
  - Muscular weakness [None]
  - Peroneal nerve palsy [None]
  - Hypoaesthesia [None]
  - Fatigue [None]
  - Asthenia [None]

NARRATIVE: CASE EVENT DATE: 20220504
